FAERS Safety Report 4592394-1 (Version None)
Quarter: 2005Q1

REPORT INFORMATION
  Report Type: 
  Country: None (occurrence: None)
  Receive Date: 20050228
  Receipt Date: 20050113
  Transmission Date: 20050727
  Serious: No
  Sender: FDA-Public Use
  Company Number: US-BRISTOL-MYERS SQUIBB COMPANY-12824249

PATIENT
  Age: 26 Year
  Sex: Male

DRUGS (4)
  1. ABILIFY [Suspect]
     Dosage: INITIATED 10 MG/DAY ON 17-AUG-04; INC TO 15 MG/DAY ON 09-SEP-04; DEC TO 10 MG/DAY, INC TO 15 MG/DAY.
     Route: 048
     Dates: start: 20040817
  2. SEROQUEL [Concomitant]
  3. RISPERDAL [Concomitant]
     Dates: end: 20040909
  4. BENADRYL [Concomitant]

REACTIONS (3)
  - PSYCHOTIC DISORDER [None]
  - RED BLOOD CELL COUNT INCREASED [None]
  - VOMITING [None]
